FAERS Safety Report 9503338 (Version 1)
Quarter: 2013Q3

REPORT INFORMATION
  Report Type: Spontaneous
  Country: SG (occurrence: SG)
  Receive Date: 20130906
  Receipt Date: 20130906
  Transmission Date: 20140515
  Serious: Yes (Hospitalization)
  Sender: FDA-Public Use
  Company Number: SG-PFIZER INC-2013252754

PATIENT
  Age: 60 Year
  Sex: Male
  Weight: 69.6 kg

DRUGS (4)
  1. CARBOPLATIN [Suspect]
     Dosage: 145 MG, CYCLIC
     Route: 042
     Dates: start: 20130422, end: 20130727
  2. DEXAMETHASONE [Concomitant]
     Dosage: 8 MG, CYCLIC
     Route: 042
     Dates: start: 20130422, end: 20130727
  3. GEMCITABINE [Concomitant]
     Dosage: 1450 MG, CYCLIC
     Route: 042
     Dates: start: 20130422, end: 20130727
  4. ONDANSETRON [Concomitant]
     Dosage: 8 MG, CYCLIC
     Route: 042
     Dates: start: 20130422, end: 20130727

REACTIONS (8)
  - Malaise [Unknown]
  - Dyspnoea [Unknown]
  - Angioedema [Unknown]
  - Flushing [Unknown]
  - Heart rate increased [Unknown]
  - Blood pressure increased [Unknown]
  - Asthma [Unknown]
  - Toxicity to various agents [Unknown]
